FAERS Safety Report 13042037 (Version 1)
Quarter: 2016Q4

REPORT INFORMATION
  Report Type: Spontaneous
  Country: US (occurrence: US)
  Receive Date: 20161219
  Receipt Date: 20161219
  Transmission Date: 20170207
  Serious: No
  Sender: FDA-Public Use
  Company Number: US-LPDUSPRD-20160839

PATIENT
  Age: 76 Year
  Sex: Female

DRUGS (7)
  1. CELECOXIB. [Concomitant]
     Active Substance: CELECOXIB
     Dosage: DOSE UNKNOWN
     Route: 048
  2. DOFETILIDE. [Concomitant]
     Active Substance: DOFETILIDE
     Dosage: DOSE UNKNOWN
     Route: 048
  3. VENOFER [Suspect]
     Active Substance: IRON SUCROSE
     Dosage: 300 MG IN 250 ML NS (X3)
     Route: 042
     Dates: start: 20150924, end: 20151022
  4. ATENOLOL. [Concomitant]
     Active Substance: ATENOLOL
     Dosage: DOSE UNKNOWN
     Route: 048
  5. WARFARIN [Concomitant]
     Active Substance: WARFARIN
     Dosage: DOSE UNKNOWN
     Route: 048
  6. ESOMEPRAZOLE [Concomitant]
     Active Substance: ESOMEPRAZOLE
     Dosage: DOSE UNKNOWN
     Route: 065
  7. LORAZEPAM. [Concomitant]
     Active Substance: LORAZEPAM
     Dosage: DOSE UNKNOWN
     Route: 048

REACTIONS (2)
  - Arthralgia [Not Recovered/Not Resolved]
  - Bone pain [Not Recovered/Not Resolved]

NARRATIVE: CASE EVENT DATE: 2015
